APPROVED DRUG PRODUCT: NORETHINDRONE
Active Ingredient: NORETHINDRONE
Strength: 0.35MG
Dosage Form/Route: TABLET;ORAL-28
Application: A200980 | Product #001 | TE Code: AB2
Applicant: XIROMED LLC
Approved: Jun 12, 2013 | RLD: No | RS: Yes | Type: RX